FAERS Safety Report 4889609-9 (Version None)
Quarter: 2006Q1

REPORT INFORMATION
  Report Type: 
  Country: None (occurrence: None)
  Receive Date: 20060124
  Receipt Date: 20051128
  Transmission Date: 20060701
  Serious: Yes (Death, Hospitalization)
  Sender: FDA-Public Use
  Company Number: 1197192-O

PATIENT
  Age: 41 Year
  Sex: Female
  Weight: 52 kg

DRUGS (1)
  1. 506U78 [Suspect]
     Dosage: 1.5MGM2 CYCLIC
     Route: 042
     Dates: start: 20051018, end: 20051112

REACTIONS (9)
  - BODY TEMPERATURE INCREASED [None]
  - HEPATIC FUNCTION ABNORMAL [None]
  - HYPERTONIA [None]
  - INFECTION [None]
  - INFLAMMATION [None]
  - LOSS OF CONSCIOUSNESS [None]
  - MULTI-ORGAN FAILURE [None]
  - RENAL FAILURE [None]
  - VENTRICULAR DYSFUNCTION [None]
